FAERS Safety Report 16291215 (Version 1)
Quarter: 2019Q2

REPORT INFORMATION
  Report Type: Report from Study
  Country: FI (occurrence: FI)
  Receive Date: 20190509
  Receipt Date: 20190509
  Transmission Date: 20190711
  Serious: Yes (Other)
  Sender: FDA-Public Use
  Company Number: FI-WHANIN PHARM. CO., LTD.-2019M1044231

PATIENT
  Age: 21 Year
  Sex: Female

DRUGS (2)
  1. LEPONEX [Suspect]
     Active Substance: CLOZAPINE
     Indication: PRODUCT USED FOR UNKNOWN INDICATION
     Dosage: UNK
  2. LEPONEX [Suspect]
     Active Substance: CLOZAPINE
     Dosage: UNK
     Dates: start: 2019

REACTIONS (4)
  - Anosognosia [Unknown]
  - Suicide attempt [Unknown]
  - Hallucination, auditory [Unknown]
  - Overdose [Unknown]

NARRATIVE: CASE EVENT DATE: 2019
